FAERS Safety Report 25673953 (Version 1)
Quarter: 2025Q3

REPORT INFORMATION
  Report Type: Spontaneous
  Country: US (occurrence: US)
  Receive Date: 20250813
  Receipt Date: 20250813
  Transmission Date: 20251021
  Serious: Yes (Other)
  Sender: SHILPA MEDICARE
  Company Number: US-KOANAAP-SML-US-2025-00381

PATIENT
  Age: 58 Year
  Sex: Male

DRUGS (6)
  1. BORTEZOMIB [Suspect]
     Active Substance: BORTEZOMIB
     Indication: Plasma cell myeloma
     Dosage: EVERY TWENTY ONE DAYS
  2. LENALIDOMIDE [Suspect]
     Active Substance: LENALIDOMIDE
     Indication: Plasma cell myeloma
  3. IBUPROFEN [Concomitant]
     Active Substance: IBUPROFEN
     Indication: Pleuritic pain
  4. IBUPROFEN [Concomitant]
     Active Substance: IBUPROFEN
     Indication: Pain in extremity
  5. PREDNISONE [Concomitant]
     Active Substance: PREDNISONE
     Indication: Pleuritic pain
  6. PREDNISONE [Concomitant]
     Active Substance: PREDNISONE
     Indication: Pain in extremity

REACTIONS (2)
  - Pulmonary blastomycosis [Unknown]
  - Dyspnoea [Unknown]
